FAERS Safety Report 13209960 (Version 5)
Quarter: 2019Q2

REPORT INFORMATION
  Report Type: Report from Study
  Country: FR (occurrence: FR)
  Receive Date: 20170210
  Receipt Date: 20190517
  Transmission Date: 20190711
  Serious: Yes (Death, Other)
  Sender: FDA-Public Use
  Company Number: FR-JAZZ-2017-FR-001835

PATIENT

DRUGS (4)
  1. ARACYTINE [Concomitant]
     Active Substance: CYTARABINE
     Indication: ACUTE MYELOID LEUKAEMIA
     Dosage: 1900MG, SINGLE
     Route: 042
     Dates: start: 20161209, end: 20161213
  2. CLOFARABINE. [Concomitant]
     Active Substance: CLOFARABINE
     Indication: ACUTE MYELOID LEUKAEMIA
     Dosage: 58 MG, QD
     Route: 042
     Dates: start: 20161210, end: 20161214
  3. DEFITELIO [Suspect]
     Active Substance: DEFIBROTIDE SODIUM
     Indication: VENOOCCLUSIVE DISEASE
     Dosage: 23.5 MG/KG, QD
     Route: 042
     Dates: start: 20161216, end: 20161218
  4. N-ACETYLCYSTEINE [Concomitant]
     Active Substance: ACETYLCYSTEINE
     Indication: VENOOCCLUSIVE LIVER DISEASE
     Dosage: .5G, SINGLE
     Route: 042
     Dates: start: 20161216, end: 20161219

REACTIONS (2)
  - Encephalopathy [Fatal]
  - Multiple organ dysfunction syndrome [Fatal]

NARRATIVE: CASE EVENT DATE: 20161219
